FAERS Safety Report 8847922 (Version 2)
Quarter: 2012Q4

REPORT INFORMATION
  Report Type: 
  Country: US (occurrence: US)
  Receive Date: 20121018
  Receipt Date: 20121102
  Transmission Date: 20130627
  Serious: Yes (Hospitalization, Disabling, Other)
  Sender: FDA-Public Use
  Company Number: US-009507513-1210USA007662

PATIENT

DRUGS (7)
  1. FOSAMAX [Suspect]
     Dosage: UNK
     Route: 048
     Dates: start: 2002, end: 200904
  2. ALENDRONATE SODIUM [Suspect]
     Indication: OSTEOPOROSIS
     Dosage: UNK
     Route: 048
     Dates: start: 200804, end: 200902
  3. ALENDRONATE SODIUM [Suspect]
     Indication: OSTEOPENIA
  4. FOSAMAX PLUS D [Suspect]
     Indication: OSTEOPOROSIS
     Dosage: UNK
     Route: 048
  5. FOSAMAX PLUS D [Suspect]
     Indication: OSTEOPENIA
  6. ACTONEL [Suspect]
     Indication: OSTEOPOROSIS
     Dosage: UNK
     Dates: start: 200904, end: 201107
  7. ACTONEL [Suspect]
     Indication: OSTEOPENIA

REACTIONS (2)
  - Femur fracture [Unknown]
  - Surgery [Unknown]
